FAERS Safety Report 17236680 (Version 2)
Quarter: 2020Q1

REPORT INFORMATION
  Report Type: Report from Study
  Country: AU (occurrence: AU)
  Receive Date: 20200106
  Receipt Date: 20200116
  Transmission Date: 20200409
  Serious: No
  Sender: FDA-Public Use
  Company Number: AU-BEH-2019111001

PATIENT
  Age: 81 Year
  Sex: Male
  Weight: 69 kg

DRUGS (1)
  1. HIZENTRA [Suspect]
     Active Substance: HUMAN IMMUNOGLOBULIN G
     Indication: PRIMARY IMMUNODEFICIENCY SYNDROME
     Dosage: 28 GRAM (140ML)/4 WEEKS
     Route: 058
     Dates: start: 201912

REACTIONS (7)
  - Injection site nodule [Unknown]
  - Injection site erythema [Unknown]
  - Injection site erythema [Unknown]
  - Injection site swelling [Unknown]
  - Injection site erythema [Unknown]
  - Injection site bruising [Unknown]
  - Injection site nodule [Unknown]

NARRATIVE: CASE EVENT DATE: 20191219
